FAERS Safety Report 9354256 (Version 1)
Quarter: 2013Q2

REPORT INFORMATION
  Report Type: Spontaneous
  Country: FR (occurrence: None)
  Receive Date: 20130613
  Receipt Date: 20130613
  Transmission Date: 20140414
  Serious: Yes (Hospitalization)
  Sender: FDA-Public Use
  Company Number: NSR_01159_2013

PATIENT
  Age: 58 Year
  Sex: Male

DRUGS (3)
  1. BACLOFEN [Suspect]
     Indication: PARESIS
     Dosage: (10 MG QD, [SLOWLY INCREASING FROM 10 TO 200 MG PER DAY])
     Dates: start: 201207
  2. BACLOFEN [Suspect]
     Indication: OFF LABEL USE
     Dosage: (10 MG QD, [SLOWLY INCREASING FROM 10 TO 200 MG PER DAY])
     Dates: start: 201207
  3. BOTULINUM TOXIN [Concomitant]

REACTIONS (10)
  - Confusional state [None]
  - Memory impairment [None]
  - Paralysis [None]
  - Dysstasia [None]
  - Abasia [None]
  - Areflexia [None]
  - Urinary incontinence [None]
  - Axonal neuropathy [None]
  - Dystonia [None]
  - Frontotemporal dementia [None]
